FAERS Safety Report 10703525 (Version 5)
Quarter: 2015Q3

REPORT INFORMATION
  Report Type: Report from Study
  Country: AU (occurrence: AU)
  Receive Date: 20150112
  Receipt Date: 20150819
  Transmission Date: 20151125
  Serious: Yes (Other)
  Sender: FDA-Public Use
  Company Number: PHHY2015AU000603

PATIENT
  Sex: Male

DRUGS (2)
  1. SANDOSTATIN LAR DEPOT [Suspect]
     Active Substance: OCTREOTIDE ACETATE
     Indication: CARCINOID SYNDROME
     Dosage: 20 MG
     Route: 030
  2. SANDOSTATIN LAR DEPOT [Suspect]
     Active Substance: OCTREOTIDE ACETATE
     Dosage: 30 MG
     Route: 030

REACTIONS (7)
  - Transient ischaemic attack [Not Recovered/Not Resolved]
  - Diarrhoea [Recovering/Resolving]
  - Blood test abnormal [Unknown]
  - Localised infection [Recovering/Resolving]
  - Fall [Recovering/Resolving]
  - Thermal burn [Recovering/Resolving]
  - Weight decreased [Not Recovered/Not Resolved]
